FAERS Safety Report 15468808 (Version 2)
Quarter: 2018Q4

REPORT INFORMATION
  Report Type: Spontaneous
  Country: US (occurrence: US)
  Receive Date: 20181005
  Receipt Date: 20181013
  Transmission Date: 20190204
  Serious: No
  Sender: FDA-Public Use
  Company Number: US-009507513-1810USA001614

PATIENT
  Age: 36 Year
  Sex: Female
  Weight: 118 kg

DRUGS (1)
  1. NEXPLANON [Suspect]
     Active Substance: ETONOGESTREL
     Dosage: LEFT UPPER ARM
     Route: 059
     Dates: start: 201611

REACTIONS (2)
  - No adverse event [Unknown]
  - Device kink [Not Recovered/Not Resolved]

NARRATIVE: CASE EVENT DATE: 20180919
